FAERS Safety Report 4907140-9 (Version None)
Quarter: 2006Q1

REPORT INFORMATION
  Report Type: 
  Country: None (occurrence: None)
  Receive Date: 20060206
  Receipt Date: 20060123
  Transmission Date: 20060701
  Serious: Yes (Hospitalization, Other)
  Sender: FDA-Public Use
  Company Number: 2006012220

PATIENT
  Age: 44 Year
  Sex: Female
  Weight: 60 kg

DRUGS (8)
  1. NEURONTIN [Suspect]
     Indication: NEURALGIA
     Dosage: 2700 MG (1 D),
  2. MORPHINE SULFATE [Suspect]
     Indication: POSTOPERATIVE ANALGESIA
  3. ACETAMINOPHEN [Concomitant]
  4. PROPOFOL [Concomitant]
  5. FENTANYL [Concomitant]
  6. ATRACURIUM BESYLATE [Concomitant]
  7. CLONIDINE [Concomitant]
  8. REMERON [Concomitant]

REACTIONS (3)
  - DEPRESSION [None]
  - DRUG INTERACTION [None]
  - DRUG TOXICITY [None]
